FAERS Safety Report 25060027 (Version 1)
Quarter: 2025Q1

REPORT INFORMATION
  Report Type: Spontaneous
  Country: US (occurrence: US)
  Receive Date: 20250310
  Receipt Date: 20250310
  Transmission Date: 20250408
  Serious: No
  Sender: BIOGEN
  Company Number: US-BIOGEN-2025BI01303016

PATIENT

DRUGS (1)
  1. ZURZUVAE [Suspect]
     Active Substance: ZURANOLONE
     Indication: Exposure via breast milk
     Route: 050
     Dates: start: 20250225

REACTIONS (2)
  - Somnolence neonatal [Not Recovered/Not Resolved]
  - Exposure via breast milk [Not Recovered/Not Resolved]
